FAERS Safety Report 25310416 (Version 2)
Quarter: 2025Q2

REPORT INFORMATION
  Report Type: Spontaneous
  Country: US (occurrence: US)
  Receive Date: 20250514
  Receipt Date: 20250527
  Transmission Date: 20250717
  Serious: Yes (Hospitalization, Other)
  Sender: RANBAXY
  Company Number: US-SUN PHARMACEUTICAL INDUSTRIES LTD-2024R1-471837

PATIENT
  Age: 76 Year
  Sex: Male

DRUGS (12)
  1. WARFARIN [Suspect]
     Active Substance: WARFARIN
     Indication: Tuberculosis
     Dosage: 14 MILLIGRAM, DAILY
     Route: 065
  2. WARFARIN [Suspect]
     Active Substance: WARFARIN
     Indication: Pulmonary embolism
  3. ENOXAPARIN SODIUM [Suspect]
     Active Substance: ENOXAPARIN SODIUM
     Indication: Pulmonary embolism
     Dosage: 1 MILLIGRAM/KILOGRAM, BID
     Route: 058
  4. ENOXAPARIN SODIUM [Suspect]
     Active Substance: ENOXAPARIN SODIUM
     Indication: Tuberculosis
  5. ISONIAZID [Suspect]
     Active Substance: ISONIAZID
     Indication: Pulmonary embolism
     Dosage: 300 MILLIGRAM, DAILY
     Route: 065
  6. ISONIAZID [Suspect]
     Active Substance: ISONIAZID
     Indication: Tuberculosis
  7. PYRAZINAMIDE [Suspect]
     Active Substance: PYRAZINAMIDE
     Indication: Pulmonary embolism
     Dosage: 1000 MILLIGRAM, DAILY
     Route: 065
  8. PYRAZINAMIDE [Suspect]
     Active Substance: PYRAZINAMIDE
     Indication: Tuberculosis
  9. RIFAMPIN [Suspect]
     Active Substance: RIFAMPIN
     Indication: Pulmonary embolism
     Dosage: 300 MILLIGRAM, BID
     Route: 065
  10. RIFAMPIN [Suspect]
     Active Substance: RIFAMPIN
     Indication: Tuberculosis
  11. ETHAMBUTOL [Suspect]
     Active Substance: ETHAMBUTOL HYDROCHLORIDE
     Indication: Pulmonary embolism
     Dosage: 800 MILLIGRAM, DAILY
     Route: 065
  12. ETHAMBUTOL [Suspect]
     Active Substance: ETHAMBUTOL HYDROCHLORIDE
     Indication: Tuberculosis

REACTIONS (2)
  - Gastrointestinal haemorrhage [Unknown]
  - International normalised ratio increased [Unknown]
